FAERS Safety Report 20654820 (Version 1)
Quarter: 2022Q1

REPORT INFORMATION
  Report Type: Spontaneous
  Country: US (occurrence: None)
  Receive Date: 20220330
  Receipt Date: 20220330
  Transmission Date: 20220423
  Serious: Yes (Other)
  Sender: FDA-Public Use
  Company Number: None

PATIENT
  Age: 43 Year
  Sex: Male
  Weight: 75.6 kg

DRUGS (3)
  1. CABOTEGRAVIR [Suspect]
     Active Substance: CABOTEGRAVIR
     Indication: Prophylaxis against HIV infection
     Dosage: OTHER FREQUENCY : ONCE;?
     Route: 030
     Dates: start: 20220323, end: 20220323
  2. Testosterone cypionate 200mg [Concomitant]
     Dates: start: 20200904, end: 20220330
  3. SILDENAFIL [Concomitant]
     Active Substance: SILDENAFIL
     Dates: start: 20200904, end: 20220330

REACTIONS (3)
  - Urticaria [None]
  - Pruritus [None]
  - Hypersensitivity [None]

NARRATIVE: CASE EVENT DATE: 20220323
